FAERS Safety Report 13950254 (Version 2)
Quarter: 2017Q3

REPORT INFORMATION
  Report Type: Spontaneous
  Country: DE (occurrence: DE)
  Receive Date: 20170908
  Receipt Date: 20170925
  Transmission Date: 20171128
  Serious: Yes (Death)
  Sender: FDA-Public Use
  Company Number: DE-SA-2017SA162994

PATIENT
  Sex: Male

DRUGS (2)
  1. CLEXANE MULTIDOSE [Suspect]
     Active Substance: ENOXAPARIN SODIUM
     Route: 065
  2. CLEXANE MULTIDOSE [Suspect]
     Active Substance: ENOXAPARIN SODIUM
     Route: 065

REACTIONS (1)
  - Pulmonary embolism [Fatal]
